FAERS Safety Report 15928462 (Version 3)
Quarter: 2019Q1

REPORT INFORMATION
  Report Type: Spontaneous
  Country: IT (occurrence: IT)
  Receive Date: 20190206
  Receipt Date: 20190226
  Transmission Date: 20190417
  Serious: Yes (Other)
  Sender: FDA-Public Use
  Company Number: IT-OTSUKA-2019_003247

PATIENT
  Age: 15 Year
  Sex: Male
  Weight: 65 kg

DRUGS (2)
  1. ABILIFY [Suspect]
     Active Substance: ARIPIPRAZOLE
     Indication: AUTISM SPECTRUM DISORDER
     Dosage: 4 ML, QD
     Route: 048
     Dates: start: 20180801, end: 20190121
  2. RISPERIDONE. [Interacting]
     Active Substance: RISPERIDONE
     Indication: AUTISM SPECTRUM DISORDER
     Dosage: 1 MG, QD
     Route: 048
     Dates: start: 20170601, end: 20190121

REACTIONS (3)
  - Sinus arrhythmia [Not Recovered/Not Resolved]
  - Product use in unapproved indication [Unknown]
  - Anger [Unknown]

NARRATIVE: CASE EVENT DATE: 20190116
